FAERS Safety Report 6672961-1 (Version None)
Quarter: 2010Q2

REPORT INFORMATION
  Report Type: 
  Country: None (occurrence: None)
  Receive Date: 20100408
  Receipt Date: 20100405
  Transmission Date: 20101027
  Serious: Yes (Other)
  Sender: FDA-Public Use
  Company Number: A0853494A

PATIENT
  Age: 68 Year
  Sex: Female

DRUGS (6)
  1. LAMICTAL CD [Suspect]
     Dosage: 3TAB TWICE PER DAY
     Route: 048
     Dates: start: 20060101
  2. KEPPRA [Concomitant]
  3. SIMVASTATIN [Concomitant]
  4. ATENOLOL [Concomitant]
  5. VESICARE [Concomitant]
  6. VITAMINS [Concomitant]

REACTIONS (4)
  - CONVULSION [None]
  - DRUG INEFFECTIVE [None]
  - FALL [None]
  - UNDERDOSE [None]
